FAERS Safety Report 16250344 (Version 1)
Quarter: 2019Q2

REPORT INFORMATION
  Report Type: Spontaneous
  Country: US (occurrence: US)
  Receive Date: 20190429
  Receipt Date: 20190429
  Transmission Date: 20190711
  Serious: Yes (Other)
  Sender: FDA-Public Use
  Company Number: US-009507513-1904USA011579

PATIENT
  Sex: Female
  Weight: 49.89 kg

DRUGS (1)
  1. NEXPLANON [Suspect]
     Active Substance: ETONOGESTREL
     Indication: CONTRACEPTION
     Dosage: IMPLANT, EVERY 3 YEARS, IN THE LEFT ARM
     Route: 059

REACTIONS (6)
  - Loss of consciousness [Not Recovered/Not Resolved]
  - Back pain [Not Recovered/Not Resolved]
  - Menorrhagia [Not Recovered/Not Resolved]
  - Dizziness [Not Recovered/Not Resolved]
  - Hot flush [Not Recovered/Not Resolved]
  - Dysmenorrhoea [Not Recovered/Not Resolved]

NARRATIVE: CASE EVENT DATE: 2019
